FAERS Safety Report 12446429 (Version 1)
Quarter: 2016Q2

REPORT INFORMATION
  Report Type: Spontaneous
  Country: US (occurrence: US)
  Receive Date: 20160608
  Receipt Date: 20160608
  Transmission Date: 20160815
  Serious: No
  Sender: FDA-Public Use
  Company Number: US-DRREDDYS-USA/USA/15/0048060

PATIENT
  Age: 8 Year
  Sex: Female
  Weight: 24.94 kg

DRUGS (1)
  1. FEXOFENADINE HCL [Suspect]
     Active Substance: FEXOFENADINE HYDROCHLORIDE
     Indication: HYPERSENSITIVITY
     Route: 048
     Dates: end: 20150514

REACTIONS (3)
  - Enuresis [Recovered/Resolved]
  - Drug administered to patient of inappropriate age [Unknown]
  - Thirst [Recovered/Resolved]
